FAERS Safety Report 25259194 (Version 1)
Quarter: 2025Q2

REPORT INFORMATION
  Report Type: Spontaneous
  Country: US (occurrence: None)
  Receive Date: 20250430
  Receipt Date: 20250430
  Transmission Date: 20250716
  Serious: No
  Sender: FDA-CTU
  Company Number: None

PATIENT
  Age: 4 Year
  Sex: Female

DRUGS (8)
  1. PURIXAN [Suspect]
     Active Substance: MERCAPTOPURINE
     Indication: Leukaemia
     Dosage: 0.53 ML DAILY ?
     Dates: start: 202310
  2. FAMOTIDINE [Concomitant]
     Active Substance: FAMOTIDINE
  3. DEXAMETHASONE [Concomitant]
     Active Substance: DEXAMETHASONE
  4. XATMEP [Concomitant]
     Active Substance: METHOTREXATE
  5. deep sea [Concomitant]
  6. bactrim suspention [Concomitant]
  7. GABAPENTIN [Concomitant]
     Active Substance: GABAPENTIN
  8. CLONIDINE [Concomitant]
     Active Substance: CLONIDINE

REACTIONS (1)
  - Abdominal discomfort [None]

NARRATIVE: CASE EVENT DATE: 20250101
